FAERS Safety Report 14682045 (Version 1)
Quarter: 2018Q1

REPORT INFORMATION
  Report Type: Spontaneous
  Country: US (occurrence: US)
  Receive Date: 20180326
  Receipt Date: 20180326
  Transmission Date: 20180509
  Serious: No
  Sender: FDA-Public Use
  Company Number: US-PFIZER INC-2018114669

PATIENT
  Age: 46 Year
  Sex: Female

DRUGS (13)
  1. FLONASE [Concomitant]
     Active Substance: FLUTICASONE PROPIONATE
     Dosage: 50 UG, DAILY (50 MCG/ACTUATION)
     Route: 045
  2. FIORICET WITH CODEINE [Concomitant]
     Active Substance: ACETAMINOPHEN\BUTALBITAL\CAFFEINE\CODEINE PHOSPHATE
     Indication: HEADACHE
     Dosage: 1 DF, AS NEEDED [BUTALBITAL: 50MG]/[CAFFEINE:40MG]/[CODEINE PHOSPHATE:30MG]/[PARACETAMOL: 325MG]
     Route: 048
  3. LASIX [Concomitant]
     Active Substance: FUROSEMIDE
     Dosage: 20 MG, UNK
     Route: 048
  4. SOMATULINE DEPOT [Concomitant]
     Active Substance: LANREOTIDE ACETATE
     Dosage: UNK
     Dates: start: 201612
  5. SOMATULINE DEPOT [Concomitant]
     Active Substance: LANREOTIDE ACETATE
     Dosage: 90 MG, MONTHLY (EVERY 4 WEEKS)
     Dates: start: 20160323, end: 201608
  6. CABERGOLINE. [Suspect]
     Active Substance: CABERGOLINE
     Dosage: 0.5 MG, 2X/WEEK
     Route: 048
     Dates: start: 2016
  7. SOMATULINE DEPOT [Concomitant]
     Active Substance: LANREOTIDE ACETATE
     Dosage: 0.5 ML, MONTHLY (EVERY 4 WEEKS)
     Route: 058
     Dates: start: 201701
  8. PRINZIDE [Concomitant]
     Active Substance: HYDROCHLOROTHIAZIDE\LISINOPRIL
     Dosage: 1 DF, DAILY [HYDROCHLOROTHIAZIDE: 25MG]/[LISINOPRIL DIHYDRATE: 20MG]
     Route: 048
  9. ZESTORETIC [Concomitant]
     Active Substance: HYDROCHLOROTHIAZIDE\LISINOPRIL
     Dosage: 1 DF, DAILY [HYDROCHLOROTHIAZIDE: 25MG]/[LISINOPRIL: 20MG]
     Route: 048
  10. URECHOLINE [Concomitant]
     Active Substance: BETHANECHOL CHLORIDE
     Dosage: UNK
  11. VOLTAREN [Concomitant]
     Active Substance: DICLOFENAC SODIUM
     Dosage: 50 MG, 2X/DAY
     Route: 048
  12. SOMAVERT [Concomitant]
     Active Substance: PEGVISOMANT
     Indication: INSULIN-LIKE GROWTH FACTOR INCREASED
     Dosage: UNK
     Dates: end: 201603
  13. CABERGOLINE. [Suspect]
     Active Substance: CABERGOLINE
     Indication: BLOOD PROLACTIN INCREASED
     Dosage: 1 MG, 2X/WEEK (0.5 MG TABLET, TAKE 2 TABS BY 2 TIMES WEEKLY)
     Route: 048

REACTIONS (3)
  - Abdominal distension [Unknown]
  - Drug dose omission [Unknown]
  - Insulin-like growth factor increased [Unknown]
